FAERS Safety Report 4949206-3 (Version None)
Quarter: 2006Q1

REPORT INFORMATION
  Report Type: 
  Country: None (occurrence: None)
  Receive Date: 20060321
  Receipt Date: 20060314
  Transmission Date: 20060701
  Serious: Yes (Other)
  Sender: FDA-Public Use
  Company Number: US-ROCHE-440485

PATIENT
  Age: 59 Year
  Sex: Female

DRUGS (2)
  1. VALIUM [Suspect]
     Indication: ANXIETY
     Route: 048
     Dates: start: 19760615, end: 20050615
  2. VALIUM [Suspect]
     Route: 048
     Dates: start: 20050615

REACTIONS (1)
  - ARTERIOSCLEROSIS [None]
